FAERS Safety Report 18693966 (Version 3)
Quarter: 2021Q1

REPORT INFORMATION
  Report Type: Report from Study
  Country: AU (occurrence: AU)
  Receive Date: 20210104
  Receipt Date: 20210224
  Transmission Date: 20210419
  Serious: No
  Sender: FDA-Public Use
  Company Number: NVSC2020AU343212

PATIENT
  Age: 60 Year
  Sex: Female

DRUGS (1)
  1. MAYZENT [Suspect]
     Active Substance: SIPONIMOD
     Indication: SECONDARY PROGRESSIVE MULTIPLE SCLEROSIS
     Dosage: 2 MG, QD
     Route: 048
     Dates: start: 20201214

REACTIONS (6)
  - Balance disorder [Unknown]
  - Feeling abnormal [Unknown]
  - Dizziness [Unknown]
  - Depression [Unknown]
  - Blister [Unknown]
  - Fatigue [Unknown]

NARRATIVE: CASE EVENT DATE: 20201221
